FAERS Safety Report 4632302-8 (Version None)
Quarter: 2005Q2

REPORT INFORMATION
  Report Type: 
  Country: None (occurrence: None)
  Receive Date: 20050401
  Receipt Date: 20040907
  Transmission Date: 20051028
  Serious: No
  Sender: FDA-Public Use
  Company Number: 04P-163-0272498-00

PATIENT
  Age: 42 Year
  Sex: Female
  Weight: 64.4108 kg

DRUGS (8)
  1. DEPAKOTE [Suspect]
     Indication: BIPOLAR DISORDER
     Dosage: PER ORAL
     Route: 048
     Dates: start: 19960101
  2. ETHANOL [Suspect]
     Dates: start: 20040628, end: 20040628
  3. QUETIAPINE [Concomitant]
  4. ASPIRIN [Concomitant]
  5. PRAVASTATIN SODIUM [Concomitant]
  6. EMPRESSE [Concomitant]
  7. BECLOMETHASONE DIPROPIONATE [Concomitant]
  8. BUPROPION HYDROCHLORIDE [Concomitant]

REACTIONS (7)
  - ANAPHYLACTIC SHOCK [None]
  - BUNDLE BRANCH BLOCK LEFT [None]
  - ERYTHEMA [None]
  - PRURITUS [None]
  - SWELLING FACE [None]
  - SWOLLEN TONGUE [None]
  - URTICARIA [None]
